FAERS Safety Report 9661318 (Version 2)
Quarter: 2013Q4

REPORT INFORMATION
  Report Type: Report from Study
  Country: US (occurrence: US)
  Receive Date: 20131031
  Receipt Date: 20131213
  Transmission Date: 20140711
  Serious: Yes (Life-Threatening, Other)
  Sender: FDA-Public Use
  Company Number: US-MERCK-1310USA011182

PATIENT
  Sex: 0

DRUGS (6)
  1. HEXADROL TABLETS [Suspect]
     Indication: AMYLOIDOSIS
     Dosage: 40 MG, ONCE WEEKLY OF A 28-DAY CYCLES
     Route: 048
  2. LENALIDOMIDE [Suspect]
     Indication: AMYLOIDOSIS
     Dosage: 10 MG/DAY ON DAYS 1-21
     Route: 048
  3. MELPHALAN [Suspect]
     Indication: AMYLOIDOSIS
     Dosage: 0.18 MG/KG, ON DAYS 1-4
     Route: 048
  4. ASPIRIN [Concomitant]
     Indication: PROPHYLAXIS
  5. WARFARIN SODIUM [Concomitant]
     Indication: PROPHYLAXIS
  6. HEPARIN LOW MOLECULAR WEIGHT [Concomitant]
     Indication: PROPHYLAXIS

REACTIONS (2)
  - Hyponatraemia [Unknown]
  - Convulsion [Unknown]
